FAERS Safety Report 7081051-8 (Version None)
Quarter: 2010Q4

REPORT INFORMATION
  Report Type: 
  Country: None (occurrence: None)
  Receive Date: 20101103
  Receipt Date: 20101028
  Transmission Date: 20110411
  Serious: Yes (Death)
  Sender: FDA-Public Use
  Company Number: US-CELGENEUS-163-50794-10110026

PATIENT
  Sex: Male

DRUGS (2)
  1. VIDAZA [Suspect]
     Route: 065
  2. PROCRIT [Concomitant]
     Route: 065

REACTIONS (4)
  - CARDIO-RESPIRATORY ARREST [None]
  - HYPOXIA [None]
  - MYELODYSPLASTIC SYNDROME [None]
  - NO THERAPEUTIC RESPONSE [None]
